FAERS Safety Report 17916127 (Version 1)
Quarter: 2020Q2

REPORT INFORMATION
  Report Type: Spontaneous
  Country: US (occurrence: US)
  Receive Date: 20200618
  Receipt Date: 20200618
  Transmission Date: 20200714
  Serious: Yes (Hospitalization)
  Sender: FDA-Public Use
  Company Number: None

PATIENT
  Age: 66 Year
  Sex: Female
  Weight: 49.4 kg

DRUGS (2)
  1. VITAMIN D3 [Suspect]
     Active Substance: CHOLECALCIFEROL
     Indication: VITAMIN D DEFICIENCY
     Dosage: ?          OTHER DOSE:50,000 IU ;?
     Route: 048
     Dates: start: 20180809
  2. NO DRUG NAME [Concomitant]

REACTIONS (8)
  - ACTH stimulation test abnormal [None]
  - Hypophagia [None]
  - Fluid intake reduced [None]
  - Heart rate increased [None]
  - Fatigue [None]
  - Blood pressure decreased [None]
  - Decreased appetite [None]
  - Nausea [None]

NARRATIVE: CASE EVENT DATE: 20200612
